FAERS Safety Report 4817155-7 (Version None)
Quarter: 2005Q4

REPORT INFORMATION
  Report Type: 
  Country: None (occurrence: None)
  Receive Date: 20051101
  Receipt Date: 20050914
  Transmission Date: 20060501
  Serious: Yes (Hospitalization)
  Sender: FDA-Public Use
  Company Number: JP-ROCHE-417659

PATIENT
  Age: 65 Year
  Sex: Female

DRUGS (10)
  1. XELODA [Suspect]
     Indication: BREAST CANCER
     Route: 048
     Dates: start: 20050608
  2. XELODA [Suspect]
     Route: 048
     Dates: start: 20050912, end: 20050914
  3. PICIBANIL [Suspect]
     Indication: PLEURAL EFFUSION
     Route: 038
     Dates: start: 20050909, end: 20050909
  4. NOVAMIN [Concomitant]
     Route: 048
     Dates: start: 20050911, end: 20050919
  5. OXYCONTIN [Concomitant]
     Route: 048
     Dates: start: 20050909
  6. MAGNESIUM OXIDE [Concomitant]
     Route: 048
     Dates: start: 20050911
  7. LASIX [Concomitant]
     Route: 048
     Dates: start: 20050913
  8. ALDACTONE [Concomitant]
     Route: 048
     Dates: start: 20050913, end: 20050920
  9. LOXONIN [Concomitant]
     Route: 048
  10. SELBEX [Concomitant]
     Route: 048

REACTIONS (2)
  - HEPATIC FUNCTION ABNORMAL [None]
  - PURPURA [None]
